FAERS Safety Report 7812207-1 (Version None)
Quarter: 2011Q4

REPORT INFORMATION
  Report Type: 
  Country: None (occurrence: None)
  Receive Date: 20111013
  Receipt Date: 20111006
  Transmission Date: 20120403
  Serious: Yes (Hospitalization)
  Sender: FDA-Public Use
  Company Number: US-UCBSA-042928

PATIENT
  Age: 36 Year
  Sex: Male

DRUGS (1)
  1. KEPPRA XR [Suspect]
     Dosage: 750 MG 3 TABLETS DAILY

REACTIONS (2)
  - PNEUMONIA [None]
  - PULMONARY CONGESTION [None]
